FAERS Safety Report 8137452-X (Version None)
Quarter: 2012Q1

REPORT INFORMATION
  Report Type: 
  Country: None (occurrence: None)
  Receive Date: 20120213
  Receipt Date: 20120201
  Transmission Date: 20120608
  Serious: Yes (Death, Hospitalization)
  Sender: FDA-Public Use
  Company Number: ACO_28678_2012

PATIENT
  Age: 55 Year
  Sex: Male

DRUGS (4)
  1. AMPYRA [Suspect]
     Indication: PRODUCT USED FOR UNKNOWN INDICATION
     Dosage: 10 MG, BID, ORAL
     Route: 048
     Dates: start: 20100330, end: 20111229
  2. BETASERON [Suspect]
     Indication: MULTIPLE SCLEROSIS
     Dosage: 0.3 MG, QOD, SUBCUTANEOUS
     Route: 058
  3. FLOMAX [Concomitant]
  4. AMBIEN CR [Concomitant]

REACTIONS (7)
  - LARGE INTESTINE PERFORATION [None]
  - MALAISE [None]
  - ABDOMINAL DISTENSION [None]
  - HIP FRACTURE [None]
  - FALL [None]
  - CARDIO-RESPIRATORY ARREST [None]
  - PULMONARY EMBOLISM [None]
